FAERS Safety Report 10968553 (Version 1)
Quarter: 2015Q1

REPORT INFORMATION
  Report Type: Spontaneous
  Country: US (occurrence: US)
  Receive Date: 20150330
  Receipt Date: 20150330
  Transmission Date: 20150721
  Serious: Yes (Other)
  Sender: FDA-Public Use
  Company Number: US-CELGENEUS-USA-2014122025

PATIENT
  Sex: Female

DRUGS (1)
  1. POMALYST [Suspect]
     Active Substance: POMALIDOMIDE
     Indication: PLASMA CELL MYELOMA
     Dosage: 2 MILLIGRAM
     Route: 048
     Dates: start: 20141112

REACTIONS (8)
  - Joint swelling [Unknown]
  - Arthralgia [Unknown]
  - Constipation [Unknown]
  - Rash [Recovered/Resolved]
  - Constipation [Recovered/Resolved]
  - Asthenia [Not Recovered/Not Resolved]
  - Muscle spasms [Recovering/Resolving]
  - Fatigue [Not Recovered/Not Resolved]

NARRATIVE: CASE EVENT DATE: 2014
